FAERS Safety Report 15798509 (Version 2)
Quarter: 2019Q1

REPORT INFORMATION
  Report Type: Report from Study
  Country: US (occurrence: US)
  Receive Date: 20190108
  Receipt Date: 20190206
  Transmission Date: 20190417
  Serious: Yes (Other)
  Sender: FDA-Public Use
  Company Number: US-GILEAD-2019-0383370

PATIENT
  Age: 72 Year
  Sex: Female

DRUGS (1)
  1. AMBRISENTAN [Suspect]
     Active Substance: AMBRISENTAN
     Indication: PRODUCT USED FOR UNKNOWN INDICATION
     Dosage: 5 MG
     Route: 065
     Dates: start: 20130805

REACTIONS (4)
  - Diabetes mellitus [Not Recovered/Not Resolved]
  - Sinusitis [Unknown]
  - Product use issue [Not Recovered/Not Resolved]
  - Upper respiratory tract congestion [Unknown]

NARRATIVE: CASE EVENT DATE: 20190202
